FAERS Safety Report 9172368 (Version 1)
Quarter: 2013Q1

REPORT INFORMATION
  Report Type: Spontaneous
  Country: US (occurrence: US)
  Receive Date: 20130319
  Receipt Date: 20130319
  Transmission Date: 20140127
  Serious: Yes (Other)
  Sender: FDA-Public Use
  Company Number: US-PFIZER INC-2013089567

PATIENT
  Age: 51 Year
  Sex: Female
  Weight: 64 kg

DRUGS (3)
  1. PRISTIQ [Suspect]
     Indication: DEPRESSION
     Dosage: 50 MG, 1X/DAY
     Dates: start: 2009
  2. PRISTIQ [Interacting]
     Dosage: 50 MG, 1X/DAY
     Dates: start: 201303, end: 201303
  3. TYLENOL [Concomitant]
     Indication: HEADACHE
     Dosage: 500 MG, AS NEEDED

REACTIONS (8)
  - Cardiovascular disorder [Unknown]
  - Drug interaction [Unknown]
  - Pain [Recovering/Resolving]
  - Muscular weakness [Recovering/Resolving]
  - Back pain [Recovering/Resolving]
  - Hot flush [Recovering/Resolving]
  - Nausea [Recovering/Resolving]
  - Muscle spasms [Recovering/Resolving]
